FAERS Safety Report 8733659 (Version 2)
Quarter: 2012Q4

REPORT INFORMATION
  Report Type: Report from Study
  Country: CA (occurrence: CA)
  Receive Date: 20120821
  Receipt Date: 20120828
  Transmission Date: 20130627
  Serious: Yes (Hospitalization, Other)
  Sender: FDA-Public Use
  Company Number: PHHY2012CA071284

PATIENT
  Sex: Male

DRUGS (1)
  1. CLOZARIL [Suspect]
     Indication: SCHIZOPHRENIA
     Dosage: 375 mg, UNK
     Route: 048
     Dates: start: 20041004

REACTIONS (3)
  - Internal hernia [Unknown]
  - Pyrexia [Unknown]
  - Gastrointestinal disorder [Recovered/Resolved]
